FAERS Safety Report 25722749 (Version 1)
Quarter: 2025Q3

REPORT INFORMATION
  Report Type: Spontaneous
  Country: CN (occurrence: CN)
  Receive Date: 20250825
  Receipt Date: 20250825
  Transmission Date: 20251021
  Serious: Yes (Other)
  Sender: OTSUKA
  Company Number: CN-MMM-Otsuka-60TRK48O

PATIENT
  Age: 28 Year
  Sex: Female
  Weight: 69 kg

DRUGS (8)
  1. ABILIFY [Suspect]
     Active Substance: ARIPIPRAZOLE
     Indication: Antipsychotic therapy
     Dosage: 5 MG, QD
     Route: 048
     Dates: start: 20250806, end: 20250808
  2. ABILIFY [Suspect]
     Active Substance: ARIPIPRAZOLE
     Indication: Adjuvant therapy
     Dosage: 5 MG, BID
     Route: 048
     Dates: start: 20250808, end: 20250811
  3. ARIPIPRAZOLE [Suspect]
     Active Substance: ARIPIPRAZOLE
     Indication: Antipsychotic therapy
     Dosage: 10 MG, QD
     Route: 048
     Dates: start: 20250805, end: 20250806
  4. ARIPIPRAZOLE [Suspect]
     Active Substance: ARIPIPRAZOLE
     Indication: Adjuvant therapy
  5. OXAZEPAM [Concomitant]
     Active Substance: OXAZEPAM
     Indication: Anxiety
     Dosage: 15 MG, QD
     Route: 048
     Dates: start: 20250806, end: 20250811
  6. LITHIUM CARBONATE [Concomitant]
     Active Substance: LITHIUM CARBONATE
     Indication: Affective disorder
     Dosage: 0.3 G, BID
     Route: 048
     Dates: start: 20250805, end: 20250806
  7. LITHIUM CARBONATE [Concomitant]
     Active Substance: LITHIUM CARBONATE
     Indication: Angina pectoris
     Dosage: 0.3 G, QD
     Route: 048
     Dates: start: 20250806, end: 20250811
  8. LITHIUM CARBONATE [Concomitant]
     Active Substance: LITHIUM CARBONATE
     Dosage: 0.3 G, BID
     Route: 048
     Dates: start: 20250811, end: 20250813

REACTIONS (1)
  - Drug-induced liver injury [Recovering/Resolving]

NARRATIVE: CASE EVENT DATE: 20250813
